FAERS Safety Report 16997102 (Version 1)
Quarter: 2019Q4

REPORT INFORMATION
  Report Type: Spontaneous
  Country: US (occurrence: US)
  Receive Date: 20190924
  Receipt Date: 20190924
  Transmission Date: 20200122
  Serious: No
  Sender: FDA-Public Use
  Company Number: None

PATIENT
  Age: 61 Year
  Sex: Female

DRUGS (1)
  1. COSENTYX [Suspect]
     Active Substance: SECUKINUMAB
     Route: 056
     Dates: start: 201708

REACTIONS (3)
  - Therapy cessation [None]
  - Disease recurrence [None]
  - Psoriasis [None]

NARRATIVE: CASE EVENT DATE: 20190724
